FAERS Safety Report 6422735-1 (Version None)
Quarter: 2009Q4

REPORT INFORMATION
  Report Type: 
  Country: None (occurrence: None)
  Receive Date: 20091102
  Receipt Date: 20091026
  Transmission Date: 20100525
  Serious: Yes (Death, Other)
  Sender: FDA-Public Use
  Company Number: US-BRISTOL-MYERS SQUIBB COMPANY-14733216

PATIENT
  Age: 67 Year
  Sex: Male
  Weight: 95 kg

DRUGS (13)
  1. DASATINIB [Suspect]
     Indication: PLEURAL MESOTHELIOMA MALIGNANT
     Route: 048
     Dates: start: 20090530, end: 20090716
  2. ACETAMINOPHEN AND HYDROCODONE BITARTRATE [Concomitant]
     Indication: PAIN
     Route: 048
     Dates: start: 20040724, end: 20090726
  3. CARVEDILOL [Concomitant]
     Indication: HYPERTENSION
     Route: 048
     Dates: start: 20090627, end: 20090726
  4. COMPAZINE [Concomitant]
     Indication: VOMITING
     Route: 048
     Dates: start: 20090706, end: 20090726
  5. LASIX [Concomitant]
     Indication: OEDEMA
     Route: 048
     Dates: start: 20090619, end: 20090726
  6. LOTREL [Concomitant]
     Indication: HYPERTENSION
     Dosage: 1 DF = 10/40
     Route: 048
     Dates: start: 20070101, end: 20090726
  7. POTASSIUM CHLORIDE [Concomitant]
     Route: 048
     Dates: start: 20090706, end: 20090726
  8. PREGABALIN [Concomitant]
     Route: 048
     Dates: start: 20090724, end: 20090726
  9. REVATIO [Concomitant]
     Route: 048
     Dates: start: 20090701, end: 20090726
  10. DOCUSATE SODIUM + SENNA [Concomitant]
     Indication: CONSTIPATION
     Route: 048
     Dates: start: 20090724, end: 20090726
  11. TRAMADOL HCL [Concomitant]
     Route: 048
     Dates: start: 20090724, end: 20090726
  12. ZOCOR [Concomitant]
     Indication: HYPERLIPIDAEMIA
     Route: 048
     Dates: start: 20040101, end: 20090726
  13. ZOFRAN [Concomitant]
     Indication: VOMITING
     Route: 048
     Dates: start: 20090706, end: 20090726

REACTIONS (4)
  - ATRIAL FIBRILLATION [None]
  - HYPERTENSION [None]
  - RENAL FAILURE ACUTE [None]
  - SUDDEN DEATH [None]
